FAERS Safety Report 22156806 (Version 1)
Quarter: 2023Q1

REPORT INFORMATION
  Report Type: Spontaneous
  Country: CN (occurrence: CN)
  Receive Date: 20230330
  Receipt Date: 20230330
  Transmission Date: 20230417
  Serious: Yes (Other)
  Sender: FDA-Public Use
  Company Number: CN-PFIZER INC-PV202300057302

PATIENT
  Age: 4 Month
  Sex: Male

DRUGS (1)
  1. ZITHROMAX [Suspect]
     Active Substance: AZITHROMYCIN DIHYDRATE
     Indication: Infection
     Dosage: 0.07 G, 1X/DAY
     Route: 048
     Dates: start: 20230326, end: 20230327

REACTIONS (5)
  - Muscle twitching [Recovering/Resolving]
  - Drug eruption [Recovering/Resolving]
  - Seizure [Recovering/Resolving]
  - Drug hypersensitivity [Recovering/Resolving]
  - Off label use [Unknown]

NARRATIVE: CASE EVENT DATE: 20230326
